FAERS Safety Report 5686259-1 (Version None)
Quarter: 2008Q1

REPORT INFORMATION
  Report Type: 
  Country: None (occurrence: None)
  Receive Date: 20080328
  Receipt Date: 20070713
  Transmission Date: 20080703
  Serious: No
  Sender: FDA-Public Use
  Company Number: US-BAYER-US-2007-026189

PATIENT
  Sex: Female

DRUGS (1)
  1. BETAPACE AF [Suspect]
     Indication: ATRIAL FIBRILLATION
     Dosage: UNIT DOSE: 160 MG

REACTIONS (1)
  - INTERCEPTED DRUG DISPENSING ERROR [None]
